APPROVED DRUG PRODUCT: TECZEM
Active Ingredient: DILTIAZEM MALATE; ENALAPRIL MALEATE
Strength: EQ 180MG HYDROCHLORIDE;5MG
Dosage Form/Route: TABLET, EXTENDED RELEASE;ORAL
Application: N020507 | Product #001
Applicant: BIOVAIL LABORATORIES INC
Approved: Oct 4, 1996 | RLD: No | RS: No | Type: DISCN